FAERS Safety Report 14678131 (Version 1)
Quarter: 2018Q1

REPORT INFORMATION
  Report Type: Spontaneous
  Country: US (occurrence: US)
  Receive Date: 20180326
  Receipt Date: 20180326
  Transmission Date: 20180509
  Serious: Yes (Other)
  Sender: FDA-Public Use
  Company Number: US-COLGATE PALMOLIVE COMPANY-20180300655

PATIENT

DRUGS (18)
  1. ASCORBIC ACID. [Suspect]
     Active Substance: ASCORBIC ACID
     Dosage: 500 MILLIGRAM TABLET, QD
     Route: 050
  2. LEVETIRACETAM. [Suspect]
     Active Substance: LEVETIRACETAM
     Dosage: ORAL SOLUTION, QD
     Route: 050
  3. POTASSIUM CHLORIDE. [Suspect]
     Active Substance: POTASSIUM CHLORIDE
     Dosage: UNK, QD
     Route: 050
  4. IPRATROPIUM, SALBUTAMOL [Suspect]
     Active Substance: ALBUTEROL\IPRATROPIUM
     Dosage: INHALATION SOLUTION
  5. LACTOBACILLUS ACIDOPHILUS [Suspect]
     Active Substance: LACTOBACILLUS ACIDOPHILUS
     Dosage: CAPSULE, QD
     Route: 050
  6. METOCLOPRAMIDE HCL [Suspect]
     Active Substance: METOCLOPRAMIDE HYDROCHLORIDE
     Dosage: TABLET
     Route: 048
  7. METOPROLOL. [Suspect]
     Active Substance: METOPROLOL
     Dosage: FILM-COATED TABLET 75 MILLIGRAM, QD
     Route: 050
  8. ROBITUSSIN CF                      /00497901/ [Suspect]
     Active Substance: DEXTROMETHORPHAN\GUAIFENESIN\PHENYLPROPANOLAMINE HYDROCHLORIDE
     Dosage: SYRUP
     Route: 065
  9. DILANTIN [Suspect]
     Active Substance: PHENYTOIN
     Route: 050
  10. NOVOLIN N [Suspect]
     Active Substance: INSULIN HUMAN
     Dosage: SUSPENSION FOR INJECTION, 17 INTERNATIONAL UNIT, QD
     Route: 058
  11. SIMVASTATIN. [Suspect]
     Active Substance: SIMVASTATIN
     Dosage: TABLET
     Route: 065
  12. CHLORHEXIDINE RINSE UNSPECIFIED [Suspect]
     Active Substance: CHLORHEXIDINE GLUCONATE
     Dosage: GARGLE 1 PER DAY
     Route: 004
  13. CEFPODOXIME PROXETIL. [Suspect]
     Active Substance: CEFPODOXIME PROXETIL
     Indication: PRODUCT USED FOR UNKNOWN INDICATION
     Dosage: FILM-COATED TABLET
     Route: 048
  14. BACLOFEN. [Suspect]
     Active Substance: BACLOFEN
     Indication: MUSCLE SPASTICITY
     Dosage: INJECTION INTRATHECAL
  15. FAMOTIDINE. [Suspect]
     Active Substance: FAMOTIDINE
     Dosage: TABLET,QD
     Route: 050
  16. GUAIFENESIN. [Suspect]
     Active Substance: GUAIFENESIN
     Dosage: 10 MILLILITER, 6 PER HOUR
     Route: 050
  17. MYLANTA [Suspect]
     Active Substance: ALUMINUM HYDROXIDE\DIMETHICONE\MAGNESIUM HYDROXIDE
     Route: 050
  18. PROTONIX [Suspect]
     Active Substance: PANTOPRAZOLE SODIUM
     Dosage: 40 MILLIGRAM, QD
     Route: 050

REACTIONS (4)
  - Acute respiratory distress syndrome [Unknown]
  - Apallic syndrome [Unknown]
  - Drug hypersensitivity [Unknown]
  - Therapy non-responder [Unknown]

NARRATIVE: CASE EVENT DATE: 20140714
